FAERS Safety Report 5350605-9 (Version None)
Quarter: 2007Q2

REPORT INFORMATION
  Report Type: 
  Country: None (occurrence: None)
  Receive Date: 20070608
  Receipt Date: 20070530
  Transmission Date: 20071010
  Serious: Yes (Life-Threatening, Hospitalization)
  Sender: FDA-Public Use
  Company Number: JP-JNJFOC-20050202443

PATIENT
  Sex: Female
  Weight: 40 kg

DRUGS (9)
  1. REMICADE [Suspect]
     Route: 042
  2. REMICADE [Suspect]
     Route: 042
  3. REMICADE [Suspect]
     Route: 042
  4. REMICADE [Suspect]
     Indication: CROHN'S DISEASE
     Dosage: 5 MG/KG
     Route: 042
  5. PREDONINE [Suspect]
     Indication: CROHN'S DISEASE
     Route: 048
  6. IMURAN [Suspect]
     Indication: CROHN'S DISEASE
     Route: 048
  7. PENTASA [Concomitant]
     Route: 048
  8. TPN [Concomitant]
  9. ENTERAL NUTRITION [Concomitant]

REACTIONS (12)
  - ABDOMINAL TENDERNESS [None]
  - CROHN'S DISEASE [None]
  - DISEASE PROGRESSION [None]
  - DRUG INEFFECTIVE [None]
  - HAEMATOCHEZIA [None]
  - HAEMOGLOBIN DECREASED [None]
  - LUNG ABSCESS [None]
  - MELAENA [None]
  - MUSCULAR WEAKNESS [None]
  - PNEUMOCYSTIS JIROVECI PNEUMONIA [None]
  - TACHYPHYLAXIS [None]
  - VOMITING [None]
